FAERS Safety Report 10637655 (Version 11)
Quarter: 2015Q2

REPORT INFORMATION
  Report Type: Spontaneous
  Country: TH (occurrence: TH)
  Receive Date: 20141208
  Receipt Date: 20150407
  Transmission Date: 20150821
  Serious: Yes (Hospitalization, Disabling)
  Sender: FDA-Public Use
  Company Number: TH-AMGEN-THASP2013071569

PATIENT
  Age: 61 Year
  Sex: Female

DRUGS (30)
  1. NEULASTIM [Suspect]
     Active Substance: PEGFILGRASTIM
     Indication: PRODUCT USED FOR UNKNOWN INDICATION
     Dosage: 6 MG, AS NEEDED
     Route: 058
     Dates: start: 20130603, end: 20131028
  2. PREDNISONE. [Concomitant]
     Active Substance: PREDNISONE
     Indication: DIFFUSE LARGE B-CELL LYMPHOMA
     Dosage: UNK
     Route: 065
  3. ONDANSETRON [Concomitant]
     Active Substance: ONDANSETRON
     Indication: PROPHYLAXIS
     Dosage: 8 MG (8 MG, 1 IN 1 D)
     Route: 042
     Dates: start: 20130531, end: 20131025
  4. CYANOCOBALAMIN. [Concomitant]
     Active Substance: CYANOCOBALAMIN
     Dosage: 300 MG (100 MG,3 IN 1 D)
     Route: 048
     Dates: start: 20130801
  5. CIPROFLOXACIN. [Concomitant]
     Active Substance: CIPROFLOXACIN
     Dosage: 1000 MG (500 MG, 2 IN 1 D)
     Route: 048
     Dates: start: 20130822, end: 20131101
  6. LOSEC [Concomitant]
     Active Substance: OMEPRAZOLE
     Indication: PROPHYLAXIS
     Dosage: 20 MG, 2 IN 1 D
     Route: 048
  7. RITUXIMAB [Concomitant]
     Active Substance: RITUXIMAB
     Indication: DIFFUSE LARGE B-CELL LYMPHOMA
     Dosage: 573 MG, 1 IN 21 D
     Route: 042
     Dates: start: 20130531
  8. OMEPRAZOLE. [Concomitant]
     Active Substance: OMEPRAZOLE
     Indication: PROPHYLAXIS
     Dosage: 40 MG (20 MG, 2 IN 1 D)
     Route: 048
     Dates: start: 20130531, end: 20131104
  9. LOSARTAN                           /01121602/ [Concomitant]
     Active Substance: LOSARTAN
     Indication: PROPHYLAXIS
     Dosage: 150 MG, 1 IN 1 D
     Route: 048
     Dates: start: 20130101, end: 20140225
  10. BACTRIM [Concomitant]
     Active Substance: SULFAMETHOXAZOLE\TRIMETHOPRIM
     Dosage: 2 DF (2 DF, 1 IN 1 D)
     Route: 048
     Dates: start: 20130822, end: 20141118
  11. FERROUS SULFATE [Concomitant]
     Active Substance: FERROUS SULFATE\FERROUS SULFATE, DRIED
     Indication: ANAEMIA
     Dosage: 1 DF, 2 IN 1 D
     Route: 048
     Dates: start: 20131125, end: 20140226
  12. RITUXIMAB [Concomitant]
     Active Substance: RITUXIMAB
     Dosage: 1400 MG, 1 IN 21 D
     Route: 058
     Dates: start: 20130621
  13. DOXORUBICIN [Concomitant]
     Active Substance: DOXORUBICIN
     Indication: DIFFUSE LARGE B-CELL LYMPHOMA
     Dosage: UNK
     Route: 065
  14. LAMIVUDINE. [Concomitant]
     Active Substance: LAMIVUDINE
     Indication: PROPHYLAXIS
     Dosage: 150 MG, 1 IN 1 D
     Route: 048
     Dates: start: 20130530, end: 20150212
  15. LOSARTAN                           /01121602/ [Concomitant]
     Active Substance: LOSARTAN
     Dosage: 100 MG,1 IN 1 D
     Route: 048
     Dates: start: 20140227
  16. DEXAMETHASONE. [Concomitant]
     Active Substance: DEXAMETHASONE
     Indication: PROPHYLAXIS
     Dosage: 10 MG (10 MG,1 IN 1 D)
     Route: 042
     Dates: start: 20130531, end: 20131025
  17. ATIVAN [Concomitant]
     Active Substance: LORAZEPAM
     Indication: PROPHYLAXIS
     Dosage: UNK UNK, AT NIGHT
     Route: 048
     Dates: start: 20130529, end: 20130607
  18. DEXAMETHASONE. [Concomitant]
     Active Substance: DEXAMETHASONE
     Dosage: 5 MG (5 MG, 1 IN 1 D)
     Route: 042
     Dates: start: 20130517, end: 20130517
  19. FERROUS SULFATE [Concomitant]
     Active Substance: FERROUS SULFATE\FERROUS SULFATE, DRIED
     Dosage: 1 DF,1 IN 1 D
     Route: 048
     Dates: start: 20140227, end: 20140820
  20. SODIUM BICARBONATE. [Concomitant]
     Active Substance: SODIUM BICARBONATE
     Indication: PROPHYLAXIS
     Dosage: 2 DF, 2 IN 1 D
     Route: 048
     Dates: start: 20130529, end: 20130607
  21. ATIVAN [Concomitant]
     Active Substance: LORAZEPAM
     Dosage: 1 MG, AT NIGHT
     Route: 048
     Dates: start: 20140227
  22. CYPROHEPTADINE                     /00042702/ [Concomitant]
     Dosage: 1 DF (1 DF, 2 IN 1 D)
     Route: 048
     Dates: start: 20130801, end: 20131123
  23. CYCLOPHOSPHAMIDE. [Concomitant]
     Active Substance: CYCLOPHOSPHAMIDE
     Indication: DIFFUSE LARGE B-CELL LYMPHOMA
     Dosage: UNK
     Route: 065
  24. VINCRISTINE [Concomitant]
     Active Substance: VINCRISTINE
     Indication: DIFFUSE LARGE B-CELL LYMPHOMA
     Dosage: UNK
     Route: 065
  25. ATIVAN [Concomitant]
     Active Substance: LORAZEPAM
     Dosage: 0.5 MG, AT NIGHT
     Route: 048
     Dates: start: 20130620
  26. MOTILIUM                           /00498202/ [Concomitant]
     Indication: PROPHYLAXIS
     Dosage: 30 MG (10 MG, 3 IN 1 D)
     Route: 048
     Dates: start: 20130531, end: 20131101
  27. ALLOPURINOL. [Concomitant]
     Active Substance: ALLOPURINOL
     Indication: PROPHYLAXIS
     Dosage: 300 MG (100 MG,3 IN 1 D)
     Route: 048
     Dates: start: 20130530, end: 20130605
  28. BENADRYL [Concomitant]
     Active Substance: DIPHENHYDRAMINE HYDROCHLORIDE
     Indication: PROPHYLAXIS
     Dosage: 50 MG (50 MG,1 IN 1 D)
     Route: 048
     Dates: start: 20130531, end: 20131025
  29. CHLORPHENIRAMINE                   /00072502/ [Concomitant]
     Dosage: 10 MG (10 MG, 1 IN 1 D)
     Route: 048
     Dates: start: 20130517, end: 20130517
  30. SENOKOT [Concomitant]
     Active Substance: SENNOSIDES
     Indication: PROPHYLAXIS
     Dosage: 1 DF, UNK
     Route: 048
     Dates: start: 20141226

REACTIONS (2)
  - Myalgia [Recovered/Resolved]
  - Spinal osteoarthritis [Recovered/Resolved]

NARRATIVE: CASE EVENT DATE: 20130912
